FAERS Safety Report 5879946-3 (Version None)
Quarter: 2008Q3

REPORT INFORMATION
  Report Type: 
  Country: None (occurrence: None)
  Receive Date: 20080912
  Receipt Date: 20080822
  Transmission Date: 20090109
  Serious: Yes (Hospitalization)
  Sender: FDA-Public Use
  Company Number: SE-WYE-H05928908

PATIENT
  Sex: Male

DRUGS (1)
  1. PANTOPRAZOLE SODIUM [Suspect]
     Indication: DYSPEPSIA
     Dosage: UNKNOWN
     Dates: end: 20080530

REACTIONS (5)
  - BLOOD BILIRUBIN INCREASED [None]
  - CHOLESTASIS [None]
  - PRURITUS [None]
  - RASH PRURITIC [None]
  - URTICARIA [None]
